FAERS Safety Report 14283808 (Version 1)
Quarter: 2017Q4

REPORT INFORMATION
  Report Type: Spontaneous
  Country: US (occurrence: US)
  Receive Date: 20171213
  Receipt Date: 20171213
  Transmission Date: 20180321
  Serious: No
  Sender: FDA-Public Use
  Company Number: None

PATIENT
  Age: 14 Year
  Sex: Female
  Weight: 49.5 kg

DRUGS (3)
  1. DOXYCYCLINE. [Concomitant]
     Active Substance: DOXYCYCLINE
  2. METHYLPHENIDATE HYDROCLORIDE [Suspect]
     Active Substance: METHYLPHENIDATE HYDROCHLORIDE
     Indication: ATTENTION DEFICIT/HYPERACTIVITY DISORDER
     Dosage: ?          QUANTITY:30 TABLET(S);?
     Route: 048
     Dates: start: 20171124, end: 20171211
  3. OMEGA SUPPLEMENTS [Concomitant]

REACTIONS (5)
  - Product substitution issue [None]
  - Headache [None]
  - Drug ineffective [None]
  - Drug intolerance [None]
  - Nausea [None]

NARRATIVE: CASE EVENT DATE: 20171201
